FAERS Safety Report 9424509 (Version 1)
Quarter: 2013Q3

REPORT INFORMATION
  Report Type: Spontaneous
  Country: FR (occurrence: None)
  Receive Date: 20130725
  Receipt Date: 20130725
  Transmission Date: 20140515
  Serious: Yes (Life-Threatening, Other)
  Sender: FDA-Public Use
  Company Number: FR-EMCURE-000712

PATIENT
  Age: 47 Year
  Sex: Male

DRUGS (10)
  1. CARMUSTINE [Suspect]
     Indication: PRODUCT USED FOR UNKNOWN INDICATION
     Dosage: (NOT OTHERWISE SPECIFIED)
     Route: 042
     Dates: start: 2012, end: 20130111
  2. TEMODAL [Suspect]
     Indication: PRODUCT USED FOR UNKNOWN INDICATION
     Dosage: 200 MG- 1.0 CYCLICAL / ORAL
     Route: 048
     Dates: start: 2012, end: 20130111
  3. NISIS (NISIS) [Concomitant]
  4. HYDROCORTISONE (HYDROCORTISONE) [Concomitant]
  5. KYTRIL (KYTRIL) [Concomitant]
  6. INEXIUM (INEXIUM) [Concomitant]
  7. BACTRIM FORTE (BACTRIM FORTE) [Concomitant]
  8. CRESTOR (CRESTOR) [Concomitant]
  9. KEPPRA (KEPPRA) [Concomitant]
  10. MEDROL (MEDROL) [Concomitant]

REACTIONS (6)
  - Hepatocellular injury [None]
  - Malignant neoplasm progression [None]
  - Lymphopenia [None]
  - Weight decreased [None]
  - Pulmonary toxicity [None]
  - Pulmonary fibrosis [None]
